FAERS Safety Report 8363418-0 (Version None)
Quarter: 2012Q2

REPORT INFORMATION
  Report Type: 
  Country: None (occurrence: None)
  Receive Date: 20120514
  Receipt Date: 20110805
  Transmission Date: 20120825
  Serious: Yes (Hospitalization)
  Sender: FDA-Public Use
  Company Number: DSA_56414_2012

PATIENT
  Age: 47 Year
  Sex: Female

DRUGS (5)
  1. CIFLOX /00697201/ (CIFLOX - CIPROFLOXACIN ) (NOT SPECIFIED)(DF) [Suspect]
     Indication: HAEMORRHAGIC DISORDER
  2. PENTASA [Suspect]
     Indication: COLITIS
     Dosage: (DF)
     Dates: start: 20110622, end: 20110624
  3. DESRIDAT /00465201/ (DEBRIDAT TRIMEBUTINE ) (NOT SPECIFIED) [Suspect]
     Indication: PRODUCT USED FOR UNKNOWN INDICATION
     Dosage: (DF)
     Dates: start: 20110622, end: 20110627
  4. VALSARTAN [Concomitant]
  5. FLAGYL [Suspect]
     Indication: HAEMORRHAGIC DISORDER
     Dosage: (DF)
     Dates: start: 20110618, end: 20110624

REACTIONS (5)
  - PANCREATITIS [None]
  - ABDOMINAL PAIN [None]
  - PROCTOCOLITIS [None]
  - DIARRHOEA [None]
  - COLITIS ULCERATIVE [None]
